FAERS Safety Report 9145441 (Version 3)
Quarter: 2013Q3

REPORT INFORMATION
  Report Type: Report from Study
  Country: DE (occurrence: DE)
  Receive Date: 20130307
  Receipt Date: 20130924
  Transmission Date: 20140515
  Serious: Yes (Hospitalization)
  Sender: FDA-Public Use
  Company Number: DE-UCBSA-079899

PATIENT
  Sex: Female
  Weight: 62 kg

DRUGS (11)
  1. CERTOLIZUMAB PEGOL [Suspect]
     Indication: RHEUMATOID ARTHRITIS
     Route: 058
     Dates: start: 20091211, end: 20120329
  2. PREDNISOLON [Concomitant]
     Indication: RHEUMATOID ARTHRITIS
     Dosage: DOSE : 5-10 MG
     Route: 048
     Dates: start: 200410, end: 201001
  3. PREDNISOLON [Concomitant]
     Indication: RHEUMATOID ARTHRITIS
     Dosage: DOSE : 2.5 MG
     Route: 048
     Dates: start: 201001, end: 2010
  4. PREDNISOLON [Concomitant]
     Indication: RHEUMATOID ARTHRITIS
     Dosage: 5 MG
     Route: 048
     Dates: start: 2010, end: 20110929
  5. PREDNISOLON [Concomitant]
     Indication: RHEUMATOID ARTHRITIS
     Route: 048
     Dates: start: 20110930, end: 20111005
  6. PREDNISOLON [Concomitant]
     Indication: RHEUMATOID ARTHRITIS
     Dosage: DOSE : 15 MG
     Route: 048
     Dates: start: 20111006, end: 20111012
  7. PREDNISOLON [Concomitant]
     Indication: RHEUMATOID ARTHRITIS
     Dosage: DOSE : 12.5 MG
     Route: 048
     Dates: start: 20111013, end: 2011
  8. PREDNISOLON [Concomitant]
     Indication: RHEUMATOID ARTHRITIS
     Dosage: DOSE : 5 MG
     Route: 048
     Dates: start: 2011
  9. METHOTREXATE [Concomitant]
     Indication: RHEUMATOID ARTHRITIS
     Route: 048
     Dates: start: 20040120
  10. L-THYROXINE [Concomitant]
     Indication: HYPERTHYROIDISM
     Dates: start: 1990
  11. FOLIC ACID [Concomitant]
     Indication: RHEUMATOID ARTHRITIS
     Dosage: DOSE : 5 MG FREQ: QS
     Dates: start: 200410

REACTIONS (1)
  - Urinary tract infection [Recovered/Resolved]
